FAERS Safety Report 24008059 (Version 3)
Quarter: 2024Q3

REPORT INFORMATION
  Report Type: Spontaneous
  Country: US (occurrence: US)
  Receive Date: 20240625
  Receipt Date: 20240722
  Transmission Date: 20241016
  Serious: Yes (Hospitalization, Other)
  Sender: BRISTOL MYERS SQUIBB
  Company Number: US-BRISTOL-MYERS SQUIBB COMPANY-2024-101050

PATIENT
  Age: 68 Year
  Sex: Male

DRUGS (16)
  1. REVLIMID [Suspect]
     Active Substance: LENALIDOMIDE
     Indication: Plasma cell myeloma
     Route: 048
     Dates: start: 20230605, end: 202406
  2. REVLIMID [Suspect]
     Active Substance: LENALIDOMIDE
     Route: 048
  3. REVLIMID [Suspect]
     Active Substance: LENALIDOMIDE
     Route: 048
  4. REVLIMID [Suspect]
     Active Substance: LENALIDOMIDE
     Dosage: FREQUENCY: 6
     Dates: start: 202306
  5. ATORVASTATIN [Concomitant]
     Active Substance: ATORVASTATIN
  6. BACTRIM DS [Concomitant]
     Active Substance: SULFAMETHOXAZOLE\TRIMETHOPRIM
     Dosage: 80-160 MG
  7. CARVEDILOL [Concomitant]
     Active Substance: CARVEDILOL
  8. DEXAMETHASONE [Concomitant]
     Active Substance: DEXAMETHASONE
  9. FAMOTIDINE [Concomitant]
     Active Substance: FAMOTIDINE
  10. FINASTERIDE [Concomitant]
     Active Substance: FINASTERIDE
  11. GABAPENTIN [Concomitant]
     Active Substance: GABAPENTIN
  12. VITAMINS [Concomitant]
     Active Substance: VITAMINS
     Dosage: ADULT 50+
  13. TAMSULOSIN [Concomitant]
     Active Substance: TAMSULOSIN
  14. VALACYCLOVIR [Concomitant]
     Active Substance: VALACYCLOVIR HYDROCHLORIDE
  15. VELCADE [Concomitant]
     Active Substance: BORTEZOMIB
     Dosage: 1 VIAL
  16. ZOFRAN [Concomitant]
     Active Substance: ONDANSETRON HYDROCHLORIDE

REACTIONS (3)
  - Pneumonia [Unknown]
  - Off label use [Unknown]
  - Neutropenia [Unknown]

NARRATIVE: CASE EVENT DATE: 20240601
